FAERS Safety Report 15061450 (Version 2)
Quarter: 2019Q3

REPORT INFORMATION
  Report Type: Spontaneous
  Country: US (occurrence: US)
  Receive Date: 20180625
  Receipt Date: 20190702
  Transmission Date: 20191004
  Serious: No
  Sender: FDA-Public Use
  Company Number: US-ROCHE-2102152

PATIENT
  Sex: Male

DRUGS (8)
  1. SIMVASTATIN. [Concomitant]
     Active Substance: SIMVASTATIN
     Route: 065
  2. XELODA [Suspect]
     Active Substance: CAPECITABINE
     Indication: GALLBLADDER CANCER
     Dosage: 5 TABS TWICE A DAY FOR 14 DAYS FOLLOWED BY 7 D OFF
     Route: 048
     Dates: start: 20180118
  3. ASPIR-LOW [Concomitant]
     Active Substance: ASPIRIN
     Route: 065
  4. ALLOPURINOL. [Concomitant]
     Active Substance: ALLOPURINOL
     Route: 065
  5. METFORMIN HCL [Concomitant]
     Active Substance: METFORMIN HYDROCHLORIDE
     Route: 065
  6. CARVEDILOL. [Concomitant]
     Active Substance: CARVEDILOL
     Route: 065
  7. LISINOPRIL. [Concomitant]
     Active Substance: LISINOPRIL
     Route: 065
  8. TAMSULOSIN HCL [Concomitant]
     Active Substance: TAMSULOSIN HYDROCHLORIDE
     Route: 065

REACTIONS (9)
  - Ill-defined disorder [Unknown]
  - Off label use [Unknown]
  - Intentional product use issue [Unknown]
  - Dyspnoea [Not Recovered/Not Resolved]
  - Dry skin [Unknown]
  - Skin exfoliation [Not Recovered/Not Resolved]
  - Nausea [Not Recovered/Not Resolved]
  - Fatigue [Not Recovered/Not Resolved]
  - Flatulence [Unknown]
